FAERS Safety Report 7515813-7 (Version None)
Quarter: 2011Q2

REPORT INFORMATION
  Report Type: 
  Country: None (occurrence: None)
  Receive Date: 20110425
  Receipt Date: 20101110
  Transmission Date: 20111010
  Serious: Yes (Other)
  Sender: FDA-Public Use
  Company Number: MC201000360

PATIENT
  Sex: Male

DRUGS (1)
  1. ANGIOMAX [Suspect]

REACTIONS (1)
  - THROMBOSIS IN DEVICE [None]
